FAERS Safety Report 16019646 (Version 1)
Quarter: 2019Q1

REPORT INFORMATION
  Report Type: Report from Study
  Country: US (occurrence: US)
  Receive Date: 20190228
  Receipt Date: 20190228
  Transmission Date: 20190418
  Serious: Yes (Hospitalization, Other)
  Sender: FDA-Public Use
  Company Number: US-JNJFOC-20190239680

PATIENT
  Age: 89 Year
  Sex: Male

DRUGS (10)
  1. IMBRUVICA [Suspect]
     Active Substance: IBRUTINIB
     Indication: CHRONIC LYMPHOCYTIC LEUKAEMIA
     Route: 048
     Dates: start: 20181123
  2. IRON [Concomitant]
     Active Substance: IRON
  3. LEVOTHYROXINE. [Concomitant]
     Active Substance: LEVOTHYROXINE
  4. ALLOPURINOL. [Concomitant]
     Active Substance: ALLOPURINOL
  5. AMICAR [Concomitant]
     Active Substance: AMINOCAPROIC ACID
  6. DOXYCYCLA [Concomitant]
  7. CYANOCOBALAMIN. [Concomitant]
     Active Substance: CYANOCOBALAMIN
  8. RANITIDINE. [Concomitant]
     Active Substance: RANITIDINE
  9. MULTIVITAMINS [Concomitant]
     Active Substance: VITAMINS
  10. MEDROL [Concomitant]
     Active Substance: METHYLPREDNISOLONE

REACTIONS (3)
  - Post procedural haemorrhage [Unknown]
  - Pneumonia [Unknown]
  - Bladder neoplasm [Recovering/Resolving]

NARRATIVE: CASE EVENT DATE: 201901
